FAERS Safety Report 15338072 (Version 1)
Quarter: 2018Q3

REPORT INFORMATION
  Report Type: Report from Study
  Country: None (occurrence: US)
  Receive Date: 20180831
  Receipt Date: 20180831
  Transmission Date: 20181010
  Serious: Yes (Other)
  Sender: FDA-Public Use
  Company Number: US-ABBVIE-18K-163-2425313-00

PATIENT
  Age: 64 Year
  Sex: Female
  Weight: 61.29 kg

DRUGS (5)
  1. METHOTREXATE. [Concomitant]
     Active Substance: METHOTREXATE
     Indication: RHEUMATOID ARTHRITIS
  2. MAGNESIUM [Concomitant]
     Active Substance: MAGNESIUM
     Indication: RESTLESS LEGS SYNDROME
  3. HUMIRA [Suspect]
     Active Substance: ADALIMUMAB
     Indication: RHEUMATOID ARTHRITIS
     Route: 058
     Dates: start: 2017
  4. FOLIC ACID. [Concomitant]
     Active Substance: FOLIC ACID
     Indication: RHEUMATOID ARTHRITIS
  5. TURMERIC [Concomitant]
     Active Substance: HERBALS\TURMERIC
     Indication: ARTHRITIS

REACTIONS (4)
  - Benign lymph node neoplasm [Recovered/Resolved]
  - Impaired healing [Recovered/Resolved]
  - Scab [Recovered/Resolved]
  - Malignant melanoma stage II [Recovered/Resolved]

NARRATIVE: CASE EVENT DATE: 201711
